FAERS Safety Report 11452141 (Version 1)
Quarter: 2015Q3

REPORT INFORMATION
  Report Type: Spontaneous
  Country: US (occurrence: US)
  Receive Date: 20150903
  Receipt Date: 20150903
  Transmission Date: 20151125
  Serious: No
  Sender: FDA-Public Use
  Company Number: US-ROCHE-1067735

PATIENT
  Sex: Female

DRUGS (4)
  1. TYLENOL [Concomitant]
     Active Substance: ACETAMINOPHEN
     Route: 065
  2. PEGASYS [Suspect]
     Active Substance: PEGINTERFERON ALFA-2A
     Indication: CHRONIC HEPATITIS C
     Route: 058
     Dates: start: 20120504
  3. RIBAVIRIN. [Suspect]
     Active Substance: RIBAVIRIN
     Indication: CHRONIC HEPATITIS C
     Dosage: 1000 MG DAILY DIVIDED DOSES (600 MG IN AM AND 400 MG IN PM)
     Route: 048
     Dates: start: 20120504
  4. ATIVAN [Concomitant]
     Active Substance: LORAZEPAM

REACTIONS (5)
  - Arthralgia [Unknown]
  - Chills [Unknown]
  - Myalgia [Unknown]
  - Cough [Unknown]
  - Pyrexia [Unknown]
